FAERS Safety Report 4612204-3 (Version None)
Quarter: 2005Q1

REPORT INFORMATION
  Report Type: 
  Country: None (occurrence: None)
  Receive Date: 20050316
  Receipt Date: 20050301
  Transmission Date: 20050727
  Serious: Yes (Other)
  Sender: FDA-Public Use
  Company Number: USA041182928

PATIENT
  Age: 87 Year
  Sex: Female

DRUGS (5)
  1. FORTEO [Suspect]
     Indication: OSTEOPOROSIS
     Dosage: 20 UG DAY
     Dates: start: 20041019
  2. EVISTA [Suspect]
     Dates: end: 20020101
  3. FOSAMAX [Concomitant]
  4. ACTONEL [Concomitant]
  5. CALCIUM GLUCONATE [Concomitant]

REACTIONS (7)
  - ARTHRALGIA [None]
  - BREAST CANCER IN SITU [None]
  - INJECTION SITE DISCOLOURATION [None]
  - INJECTION SITE NODULE [None]
  - MAMMOGRAM ABNORMAL [None]
  - OESTROGEN RECEPTOR ASSAY POSITIVE [None]
  - PHARMACEUTICAL PRODUCT COMPLAINT [None]
